FAERS Safety Report 4743429-4 (Version None)
Quarter: 2005Q3

REPORT INFORMATION
  Report Type: 
  Country: None (occurrence: None)
  Receive Date: 20050810
  Receipt Date: 20050810
  Transmission Date: 20060218
  Serious: Yes (Disabling, Other)
  Sender: FDA-Public Use
  Company Number: None

PATIENT
  Sex: Female
  Weight: 54.8852 kg

DRUGS (1)
  1. TOPROL-XL [Suspect]
     Indication: HYPERTENSION
     Dosage: 25MG ONCE DAILY ORALLY
     Route: 048
     Dates: start: 20050514, end: 20050520

REACTIONS (7)
  - ASTHENOPIA [None]
  - BURNING SENSATION [None]
  - DECREASED ACTIVITY [None]
  - FATIGUE [None]
  - IMPAIRED DRIVING ABILITY [None]
  - PARAESTHESIA [None]
  - SOMNOLENCE [None]
